FAERS Safety Report 9740920 (Version 1)
Quarter: 2013Q4

REPORT INFORMATION
  Report Type: Spontaneous
  Country: US (occurrence: US)
  Receive Date: 20131209
  Receipt Date: 20131209
  Transmission Date: 20140711
  Serious: No
  Sender: FDA-Public Use
  Company Number: US-BIOGENIDEC-2013BI099658

PATIENT
  Age: 34 Year
  Sex: Female
  Weight: 68 kg

DRUGS (10)
  1. TECFIDERA [Suspect]
     Indication: PRODUCT USED FOR UNKNOWN INDICATION
     Route: 048
  2. TECFIDERA [Suspect]
     Indication: PRODUCT USED FOR UNKNOWN INDICATION
     Route: 048
  3. ADDERALL [Concomitant]
     Route: 048
  4. MINOCYCLINE [Concomitant]
     Route: 048
  5. PROZAC [Concomitant]
     Route: 048
  6. AMBIEN [Concomitant]
     Route: 048
  7. LASIX [Concomitant]
     Route: 048
  8. VITAMIN D-3 [Concomitant]
     Route: 048
  9. ADVIL [Concomitant]
     Route: 048
  10. NUVARING [Concomitant]
     Route: 067

REACTIONS (5)
  - Headache [Unknown]
  - Constipation [Unknown]
  - Pruritus [Unknown]
  - Flushing [Unknown]
  - Diarrhoea [Unknown]
